FAERS Safety Report 12342684 (Version 2)
Quarter: 2016Q2

REPORT INFORMATION
  Report Type: Other
  Country: NZ (occurrence: NZ)
  Receive Date: 20160506
  Receipt Date: 20160512
  Transmission Date: 20160815
  Serious: Yes (Death, Other)
  Sender: FDA-Public Use
  Company Number: NZ-MYLANLABS-2016M1017478

PATIENT

DRUGS (5)
  1. QUETIAPINE. [Suspect]
     Active Substance: QUETIAPINE
     Indication: PRODUCT USED FOR UNKNOWN INDICATION
     Dosage: 200 MG, QD
     Route: 048
     Dates: start: 20091104, end: 20100325
  2. CLOZAPINE. [Suspect]
     Active Substance: CLOZAPINE
     Indication: PRODUCT USED FOR UNKNOWN INDICATION
     Dosage: 350 MG, QD
     Route: 048
     Dates: start: 1997, end: 200906
  3. OLANZAPINE. [Suspect]
     Active Substance: OLANZAPINE
     Indication: PRODUCT USED FOR UNKNOWN INDICATION
     Dosage: 15 MG, QD
     Route: 048
     Dates: start: 200910, end: 20100325
  4. FLUOXETINE [Suspect]
     Active Substance: FLUOXETINE HYDROCHLORIDE
     Indication: PRODUCT USED FOR UNKNOWN INDICATION
     Dosage: 40 MG, QD
     Route: 048
     Dates: start: 199211, end: 199304
  5. PAXAM [Suspect]
     Active Substance: CLONAZEPAM
     Indication: PRODUCT USED FOR UNKNOWN INDICATION
     Dosage: 1 MG, QD
     Route: 048
     Dates: start: 200905, end: 20100325

REACTIONS (5)
  - Sleep disorder [Unknown]
  - Completed suicide [Fatal]
  - Hypoaesthesia [Unknown]
  - Weight increased [Unknown]
  - Depression [Unknown]

NARRATIVE: CASE EVENT DATE: 200911
